FAERS Safety Report 4281642-3 (Version None)
Quarter: 2004Q1

REPORT INFORMATION
  Report Type: 
  Country: None (occurrence: None)
  Receive Date: 20040128
  Receipt Date: 20040116
  Transmission Date: 20041129
  Serious: Yes (Hospitalization)
  Sender: FDA-Public Use
  Company Number: 04P-062-0247701-00

PATIENT
  Age: 63 Year
  Sex: Male
  Weight: 77 kg

DRUGS (3)
  1. HUMIRA [Suspect]
     Indication: RHEUMATOID ARTHRITIS
     Dosage: 40 MG, 1 IN 2 WK, SUBCUTANEOUS
     Route: 058
     Dates: start: 20031101, end: 20031215
  2. METHOTREXATE SODIUM [Suspect]
     Indication: RHEUMATOID ARTHRITIS
     Dosage: 25 MG, 1 IN 7 DE, INTRAMUSCULAR
     Route: 030
     Dates: end: 20031215
  3. GLUCOCORTICOIDS [Concomitant]

REACTIONS (2)
  - BRONCHOPNEUMONIA [None]
  - CLOSTRIDIUM COLITIS [None]
